FAERS Safety Report 7822972-5 (Version None)
Quarter: 2011Q4

REPORT INFORMATION
  Report Type: 
  Country: None (occurrence: None)
  Receive Date: 20111018
  Receipt Date: 20110421
  Transmission Date: 20120403
  Serious: No
  Sender: FDA-Public Use
  Company Number: US-ASTRAZENECA-2011SE22861

PATIENT
  Age: 70 Year
  Sex: Female
  Weight: 63 kg

DRUGS (6)
  1. SYMBICORT [Suspect]
     Indication: CHRONIC OBSTRUCTIVE PULMONARY DISEASE
     Dosage: 2 PUFFS BID
     Route: 055
     Dates: start: 20101001
  2. OMEPRAZOLE [Concomitant]
  3. ALBUTEROL [Concomitant]
     Dates: end: 20090101
  4. COMBIVENT [Concomitant]
  5. PRAVASTATIN [Concomitant]
  6. DILTIAZEM HCL [Concomitant]
     Indication: CARDIAC DISORDER

REACTIONS (2)
  - CONTUSION [None]
  - DYSPNOEA [None]
